FAERS Safety Report 9338914 (Version 1)
Quarter: 2013Q2

REPORT INFORMATION
  Report Type: Spontaneous
  Country: CA (occurrence: CA)
  Receive Date: 20130610
  Receipt Date: 20130610
  Transmission Date: 20140414
  Serious: Yes (Other)
  Sender: FDA-Public Use
  Company Number: CA-PFIZER INC-2013171079

PATIENT
  Sex: Female

DRUGS (3)
  1. ADVIL NIGHTTIME [Suspect]
     Dosage: 2 LIQUI-GELS EVERY NIGHT
     Dates: start: 2011
  2. GABAPENTIN [Concomitant]
     Dosage: 400 MG, 2X/DAY
  3. ATIVAN [Concomitant]
     Dosage: 2.5 MG, UNK
     Dates: start: 2003

REACTIONS (5)
  - Convulsion [Unknown]
  - Dizziness [Not Recovered/Not Resolved]
  - Decreased appetite [Not Recovered/Not Resolved]
  - Abdominal distension [Not Recovered/Not Resolved]
  - Amnesia [Not Recovered/Not Resolved]
